FAERS Safety Report 4491878-4 (Version None)
Quarter: 2004Q4

REPORT INFORMATION
  Report Type: 
  Country: None (occurrence: None)
  Receive Date: 20041028
  Receipt Date: 20041028
  Transmission Date: 20050328
  Serious: Yes (Other)
  Sender: FDA-Public Use
  Company Number: None

PATIENT
  Age: 27 Year
  Sex: Female
  Weight: 61.2356 kg

DRUGS (1)
  1. DEPO-PROVERA [Suspect]
     Dosage: ONE TIME

REACTIONS (5)
  - DEPRESSED MOOD [None]
  - DEPRESSION [None]
  - LIBIDO DECREASED [None]
  - MOOD SWINGS [None]
  - WEIGHT INCREASED [None]
